FAERS Safety Report 8391446-8 (Version None)
Quarter: 2012Q2

REPORT INFORMATION
  Report Type: 
  Country: None (occurrence: None)
  Receive Date: 20120529
  Receipt Date: 20120516
  Transmission Date: 20120825
  Serious: Yes (Hospitalization)
  Sender: FDA-Public Use
  Company Number: US-SANOFI-AVENTIS-2012SA035454

PATIENT
  Age: 69 Year
  Weight: 84.5 kg

DRUGS (2)
  1. ANTIHYPERTENSIVES [Concomitant]
     Dosage: PATIENT DISONTINUED PRIOR TO EVENT
     Dates: end: 20120101
  2. CABAZITAXEL [Suspect]
     Indication: METASTATIC GASTRIC CANCER
     Dosage: EVERY 21 DAYS
     Route: 041
     Dates: start: 20120416, end: 20120416

REACTIONS (4)
  - PERONEAL NERVE PALSY [None]
  - OEDEMA PERIPHERAL [None]
  - ATAXIA [None]
  - MUSCULAR WEAKNESS [None]
